FAERS Safety Report 16056881 (Version 1)
Quarter: 2019Q1

REPORT INFORMATION
  Report Type: Spontaneous
  Country: US (occurrence: US)
  Receive Date: 20190311
  Receipt Date: 20190311
  Transmission Date: 20190418
  Serious: Yes (Life-Threatening, Hospitalization, Other)
  Sender: FDA-Public Use
  Company Number: US-PFIZER INC-2019101365

PATIENT
  Age: 36 Year
  Sex: Male

DRUGS (1)
  1. PENTOSTATIN. [Suspect]
     Active Substance: PENTOSTATIN
     Indication: HAIRY CELL LEUKAEMIA
     Dosage: 4 MG/M2, (EVERY 2 WEEKS); INFUSION

REACTIONS (2)
  - Septic shock [Recovered/Resolved]
  - Neutropenia [Recovering/Resolving]
